FAERS Safety Report 5525363-5 (Version None)
Quarter: 2007Q4

REPORT INFORMATION
  Report Type: 
  Country: None (occurrence: None)
  Receive Date: 20071120
  Receipt Date: 20070517
  Transmission Date: 20080405
  Serious: Yes (Other)
  Sender: FDA-Public Use
  Company Number: 2007003047

PATIENT
  Age: 83 Year
  Sex: Female

DRUGS (5)
  1. TIKOSYN [Suspect]
     Indication: ATRIAL FIBRILLATION
     Dosage: 500 MCG (250 MCG,2 IN 1 D)
     Dates: start: 20060518
  2. SERTRALINE HYDROCHLORIDE [Concomitant]
  3. METOPROLOL TARTRATE [Concomitant]
  4. COUMADIN [Concomitant]
  5. HYDROCHLOROTHIAZIDE [Concomitant]

REACTIONS (7)
  - ATRIAL FIBRILLATION [None]
  - DERMAL CYST [None]
  - DIARRHOEA [None]
  - OEDEMA PERIPHERAL [None]
  - OSTEOARTHRITIS [None]
  - URINARY TRACT INFECTION [None]
  - VOMITING [None]
